FAERS Safety Report 6793299-8 (Version None)
Quarter: 2010Q2

REPORT INFORMATION
  Report Type: 
  Country: None (occurrence: None)
  Receive Date: 20100624
  Receipt Date: 20091228
  Transmission Date: 20101027
  Serious: Yes (Other)
  Sender: FDA-Public Use
  Company Number: US-MYLANLABS-2009S1019198

PATIENT
  Age: 25 Year
  Sex: Female
  Weight: 82.56 kg

DRUGS (9)
  1. CLOZAPINE [Suspect]
     Indication: BIPOLAR DISORDER
     Route: 048
     Dates: end: 20091113
  2. CLOZAPINE [Suspect]
     Route: 048
     Dates: start: 20091116
  3. CLOZAPINE [Suspect]
     Route: 048
     Dates: end: 20091113
  4. CLOZAPINE [Suspect]
     Route: 048
     Dates: start: 20091116
  5. IBUPROFEN [Concomitant]
     Dosage: Q6H AND PRN
  6. DIVALPROEX SODIUM EXTENDED RELEASE [Concomitant]
  7. PROMETHAZINE [Concomitant]
     Dosage: TID PRN
  8. KLONOPIN [Concomitant]
  9. PROTONIX [Concomitant]

REACTIONS (1)
  - GRANULOCYTOPENIA [None]
